FAERS Safety Report 17692322 (Version 11)
Quarter: 2024Q1

REPORT INFORMATION
  Report Type: Spontaneous
  Country: US (occurrence: US)
  Receive Date: 20200422
  Receipt Date: 20240129
  Transmission Date: 20240410
  Serious: Yes (Other)
  Sender: FDA-Public Use
  Company Number: US-PFIZER INC-2020158788

PATIENT
  Age: 72 Year
  Sex: Female

DRUGS (2)
  1. IBRANCE [Suspect]
     Active Substance: PALBOCICLIB
     Indication: Breast cancer female
     Dosage: 100 MG
  2. IBRANCE [Suspect]
     Active Substance: PALBOCICLIB
     Dosage: DAILY FOR 21 DAYS TAKE WITH FOOD.
     Route: 048

REACTIONS (15)
  - Second primary malignancy [Unknown]
  - Laryngeal neoplasm [Unknown]
  - White blood cell count decreased [Unknown]
  - Asthenia [Unknown]
  - Fatigue [Unknown]
  - Vocal cord paralysis [Unknown]
  - Dysphagia [Unknown]
  - Dysphonia [Unknown]
  - Upper-airway cough syndrome [Unknown]
  - Weight increased [Not Recovered/Not Resolved]
  - Dyspnoea [Unknown]
  - Communication disorder [Unknown]
  - Sneezing [Unknown]
  - Cough [Unknown]
  - Neoplasm progression [Unknown]
